FAERS Safety Report 4423473-7 (Version None)
Quarter: 2004Q3

REPORT INFORMATION
  Report Type: 
  Country: None (occurrence: None)
  Receive Date: 20040806
  Receipt Date: 20040723
  Transmission Date: 20050211
  Serious: Yes (Life-Threatening)
  Sender: FDA-Public Use
  Company Number: 2004AP03602

PATIENT
  Age: 81 Year
  Sex: Female

DRUGS (10)
  1. TENORMIN [Suspect]
     Indication: HYPERTENSION
     Dosage: 25 MG DAILY PO
     Route: 048
     Dates: start: 20040709, end: 20040710
  2. LASIX [Concomitant]
  3. WARFARIN SODIUM [Concomitant]
  4. CALSLOT [Concomitant]
  5. LOXONIN [Concomitant]
  6. MARZULENE [Concomitant]
  7. MYSLEE [Concomitant]
  8. PURSENNID [Concomitant]
  9. KALIMATE [Concomitant]
  10. SERMION [Concomitant]

REACTIONS (7)
  - BRADYCARDIA [None]
  - CARDIAC FAILURE [None]
  - CARDIOGENIC SHOCK [None]
  - DRUG LEVEL INCREASED [None]
  - HAEMODIALYSIS [None]
  - HEPATIC FAILURE [None]
  - ISCHAEMIC HEPATITIS [None]
